FAERS Safety Report 8189428-4 (Version None)
Quarter: 2012Q1

REPORT INFORMATION
  Report Type: 
  Country: None (occurrence: None)
  Receive Date: 20120307
  Receipt Date: 20120301
  Transmission Date: 20120608
  Serious: No
  Sender: FDA-Public Use
  Company Number: US-PFIZER INC-2012056032

PATIENT
  Sex: Female
  Weight: 63.5 kg

DRUGS (1)
  1. RELPAX [Suspect]
     Indication: MIGRAINE
     Dosage: 40 MG, 1X/DAY
     Route: 048
     Dates: start: 20120221, end: 20120222

REACTIONS (2)
  - DYSPNOEA [None]
  - CHEST DISCOMFORT [None]
